FAERS Safety Report 15632773 (Version 2)
Quarter: 2018Q4

REPORT INFORMATION
  Report Type: Spontaneous
  Country: FR (occurrence: FR)
  Receive Date: 20181119
  Receipt Date: 20181130
  Transmission Date: 20190205
  Serious: Yes (Other)
  Sender: FDA-Public Use
  Company Number: FR-009507513-1811FRA004750

PATIENT
  Sex: Female

DRUGS (1)
  1. ISENTRESS [Suspect]
     Active Substance: RALTEGRAVIR POTASSIUM
     Dosage: UNK
     Route: 048
     Dates: start: 2012

REACTIONS (5)
  - Coronary artery bypass [Unknown]
  - Aortic valve replacement [Unknown]
  - Gastric mucosal lesion [Unknown]
  - Gastrointestinal haemorrhage [Unknown]
  - Infarction [Unknown]

NARRATIVE: CASE EVENT DATE: 2015
